FAERS Safety Report 7681614-2 (Version None)
Quarter: 2011Q3

REPORT INFORMATION
  Report Type: 
  Country: None (occurrence: None)
  Receive Date: 20110812
  Receipt Date: 20110810
  Transmission Date: 20111222
  Serious: Yes (Death)
  Sender: FDA-Public Use
  Company Number: PHEH2011US01202

PATIENT
  Sex: Male
  Weight: 86.168 kg

DRUGS (2)
  1. EXJADE [Suspect]
     Indication: IRON OVERLOAD
     Dosage: 500 MG, DAILY
     Route: 048
     Dates: start: 20101130
  2. EXJADE [Suspect]
     Indication: HAEMOCHROMATOSIS

REACTIONS (1)
  - DEATH [None]
